FAERS Safety Report 20584638 (Version 2)
Quarter: 2022Q2

REPORT INFORMATION
  Report Type: Spontaneous
  Country: ES (occurrence: ES)
  Receive Date: 20220311
  Receipt Date: 20220601
  Transmission Date: 20220721
  Serious: Yes (Hospitalization, Other)
  Sender: FDA-Public Use
  Company Number: ES-ROCHE-2976622

PATIENT
  Age: 68 Year
  Sex: Male
  Weight: 103.6 kg

DRUGS (39)
  1. VINCRISTINE [Suspect]
     Active Substance: VINCRISTINE
     Indication: Diffuse large B-cell lymphoma
     Dosage: ON 12/NOV/2021, HE RECEIVED MOST RECENT DOSE OF VINCRISTINE (1.99 MG) PRIOR TO SAE, UNIT DOSE : 2 MG
     Route: 042
     Dates: start: 20211022
  2. PREDNISONE [Suspect]
     Active Substance: PREDNISONE
     Indication: Diffuse large B-cell lymphoma
     Dosage: ON 26/OCT/2021, HE RECEIVED MOST RECENT DOSE OF PREDNISONE PRIOR TO SAE, UNIT DOSE : 100 MG
     Route: 048
     Dates: start: 20211023
  3. METHYLPREDNISOLONE [Suspect]
     Active Substance: METHYLPREDNISOLONE
     Indication: Diffuse large B-cell lymphoma
     Dosage: ON 12/NOV/2021, HE RECEIVED MOST RECENT DOSE OF METHYLPREDNISOLONE PRIOR TO SAE, UNIT DOSE: 80 MG
     Route: 048
     Dates: start: 20211022
  4. RITUXIMAB [Suspect]
     Active Substance: RITUXIMAB
     Indication: Diffuse large B-cell lymphoma
     Dosage: ON 12/NOV/2021, HE RECEIVED MOST RECENT DOSE OF RITUXIMAB PRIOR TO SAE (TOTAL VOLUME : 332.9 ML), UN
     Route: 042
     Dates: start: 20211022
  5. DOXORUBICIN [Suspect]
     Active Substance: DOXORUBICIN
     Indication: Diffuse large B-cell lymphoma
     Dosage: ON 12/NOV/2021, HE RECEIVED MOST RECENT DOSE OF DOXORUBICIN PRIOR TO SAE, UNIT DOSE : 110.5 MG
     Route: 042
     Dates: start: 20211022
  6. GLOFITAMAB [Suspect]
     Active Substance: GLOFITAMAB
     Indication: Diffuse large B-cell lymphoma
     Dosage: ON 03/DEC/2021, HE RECEIVED MOST RECENT DOSE OF GLOFITAMAB 10 MG (TOTAL VOLUME : 100 ML) PRIOR TO SA
     Route: 042
     Dates: start: 20211119
  7. CYCLOPHOSPHAMIDE [Suspect]
     Active Substance: CYCLOPHOSPHAMIDE
     Indication: Diffuse large B-cell lymphoma
     Dosage: ON 12/NOV/2021, HE RECEIVED MOST RECENT DOSE OF CYCLOPHOSPHAMIDE PRIOR TO SAE, UNIT DOSE :1657.5 MG
     Route: 042
     Dates: start: 20211022
  8. CIPROFLOXACIN [Concomitant]
     Active Substance: CIPROFLOXACIN
     Indication: Pyrexia
     Dates: start: 20211106, end: 20211106
  9. VALSARTAN [Concomitant]
     Active Substance: VALSARTAN
     Indication: Hypertension
  10. ASPIRIN [Concomitant]
     Active Substance: ASPIRIN
     Indication: Pain
  11. AMOXICILLIN [Concomitant]
     Active Substance: AMOXICILLIN
     Indication: Pyrexia
     Dates: start: 20211106, end: 20211106
  12. REMDESIVIR [Concomitant]
     Active Substance: REMDESIVIR
     Indication: COVID-19
     Dates: start: 20211225
  13. CLAVULANIC ACID [Concomitant]
     Active Substance: CLAVULANIC ACID
     Indication: Pyrexia
     Dates: start: 20211106, end: 20211106
  14. SULFAMETHOXAZOLE [Concomitant]
     Active Substance: SULFAMETHOXAZOLE
     Indication: Antibiotic prophylaxis
     Dates: start: 20211019
  15. ACYCLOVIR [Concomitant]
     Active Substance: ACYCLOVIR
     Indication: Antiviral prophylaxis
     Dates: start: 20211019
  16. DEXAMETHASONE [Concomitant]
     Active Substance: DEXAMETHASONE
     Indication: Prophylaxis
     Dosage: 20 MG
     Route: 042
     Dates: start: 20211203, end: 20211203
  17. DEXAMETHASONE [Concomitant]
     Active Substance: DEXAMETHASONE
     Dosage: 20 MG
     Route: 042
     Dates: start: 20211217, end: 20211217
  18. DEXAMETHASONE [Concomitant]
     Active Substance: DEXAMETHASONE
     Dosage: 5 MG
     Route: 042
     Dates: start: 20211119, end: 20211119
  19. DEXAMETHASONE [Concomitant]
     Active Substance: DEXAMETHASONE
     Dosage: 20 MG
     Route: 042
     Dates: start: 20211119, end: 20211119
  20. PIPERACILLIN AND TAZOBACTAM [Concomitant]
     Active Substance: PIPERACILLIN SODIUM\TAZOBACTAM SODIUM
     Indication: COVID-19
     Dates: start: 20211231
  21. PIPERACILLIN AND TAZOBACTAM [Concomitant]
     Active Substance: PIPERACILLIN SODIUM\TAZOBACTAM SODIUM
     Indication: Cytokine release syndrome
     Dates: start: 20211225
  22. PIPERACILLIN AND TAZOBACTAM [Concomitant]
     Active Substance: PIPERACILLIN SODIUM\TAZOBACTAM SODIUM
     Dosage: DURATION : 2 DAYS
     Dates: start: 20211204, end: 20211205
  23. TRIMETHOPRIM [Concomitant]
     Active Substance: TRIMETHOPRIM
     Indication: Antibiotic prophylaxis
     Dates: start: 20211019
  24. TENOFOVIR [Concomitant]
     Active Substance: TENOFOVIR
     Indication: Antiviral prophylaxis
     Dates: start: 20211019
  25. ACETAMINOPHEN [Concomitant]
     Active Substance: ACETAMINOPHEN
     Indication: Prophylaxis
     Route: 048
     Dates: start: 20211210, end: 20211210
  26. ACETAMINOPHEN [Concomitant]
     Active Substance: ACETAMINOPHEN
     Dosage: 1 GRAM
     Route: 048
     Dates: start: 20211119, end: 20211119
  27. ACETAMINOPHEN [Concomitant]
     Active Substance: ACETAMINOPHEN
     Dosage: 1 GRAM
     Route: 048
     Dates: start: 20211203, end: 20211203
  28. ACETAMINOPHEN [Concomitant]
     Active Substance: ACETAMINOPHEN
     Dosage: 1 GRAM
     Route: 048
     Dates: start: 20211217, end: 20211217
  29. ZOFRAN [Concomitant]
     Active Substance: ONDANSETRON HYDROCHLORIDE
     Indication: Nausea
     Dosage: [ONDANSETRON]
     Dates: start: 20211118
  30. ALLOPURINOL [Concomitant]
     Active Substance: ALLOPURINOL
     Indication: Hyperuricaemia
  31. FILGRASTIM [Concomitant]
     Active Substance: FILGRASTIM
     Indication: Neutropenia
     Dates: start: 20211026, end: 20211027
  32. FILGRASTIM [Concomitant]
     Active Substance: FILGRASTIM
     Dosage: DURATION : 2 DAYS
     Dates: start: 20211215, end: 20211216
  33. DEXCHLORPHENIRAMINE [Concomitant]
     Active Substance: DEXCHLORPHENIRAMINE
     Indication: Prophylaxis
     Dosage: 5 MG
     Route: 042
     Dates: start: 20211217, end: 20211217
  34. DEXCHLORPHENIRAMINE [Concomitant]
     Active Substance: DEXCHLORPHENIRAMINE
     Dosage: 5 MG
     Route: 042
     Dates: start: 20211119, end: 20211119
  35. DEXCHLORPHENIRAMINE [Concomitant]
     Active Substance: DEXCHLORPHENIRAMINE
     Dosage: 5 MG
     Route: 042
     Dates: start: 20211210, end: 20211210
  36. DEXCHLORPHENIRAMINE [Concomitant]
     Active Substance: DEXCHLORPHENIRAMINE
     Dosage: 5 MG
     Route: 042
     Dates: start: 20211203, end: 20211203
  37. PREDNISONE [Concomitant]
     Active Substance: PREDNISONE
     Dosage: DURATION : 2 DAYS
     Dates: start: 20211205, end: 20211206
  38. MEROPENEM [Concomitant]
     Active Substance: MEROPENEM
     Indication: Cytokine release syndrome
     Dosage: DURATION : 2 DAYS
     Dates: start: 20211203, end: 20211204
  39. LORAZEPAM [Concomitant]
     Active Substance: LORAZEPAM

REACTIONS (2)
  - Cytokine release syndrome [Recovered/Resolved with Sequelae]
  - Neutropenia [Recovered/Resolved]

NARRATIVE: CASE EVENT DATE: 20211125
